FAERS Safety Report 19414955 (Version 2)
Quarter: 2021Q2

REPORT INFORMATION
  Report Type: Spontaneous
  Country: US (occurrence: US)
  Receive Date: 20210615
  Receipt Date: 20210615
  Transmission Date: 20210717
  Serious: No
  Sender: FDA-Public Use
  Company Number: US-APOTEX-2020AP017884

PATIENT
  Age: 9 Year
  Sex: Male

DRUGS (9)
  1. ZINC. [Concomitant]
     Active Substance: ZINC
     Indication: ARTHRALGIA
     Route: 065
  2. FLUVOXAMINE MALEATE TABLETS [Suspect]
     Active Substance: FLUVOXAMINE MALEATE
     Indication: IMPULSIVE BEHAVIOUR
     Dosage: 1 DOSAGE FORM, Q.H.S.
     Route: 048
     Dates: start: 20200905
  3. SYNTHROID [Concomitant]
     Active Substance: LEVOTHYROXINE SODIUM
     Indication: THYROID DISORDER
     Dosage: 0.25 MILLIGRAM
     Route: 065
  4. CLONIDINE HYDROCHLORIDE. [Concomitant]
     Active Substance: CLONIDINE HYDROCHLORIDE
     Indication: SLEEP DISORDER
     Dosage: 0.4 MILLIGRAM
     Route: 065
  5. IBUPROFEN. [Concomitant]
     Active Substance: IBUPROFEN
     Indication: PRODUCT USED FOR UNKNOWN INDICATION
     Dosage: 400 MILLIGRAM, QD (IN THE MORNING AND NIGHT)
     Route: 065
  6. HYDROXYZINE [Concomitant]
     Active Substance: HYDROXYZINE HYDROCHLORIDE
     Indication: HYPERSENSITIVITY
     Dosage: 100 MILLIGRAM, QD (50 MG IN THE MORNING, 50 MG AT NIGHT)
     Route: 065
  7. CEFDINIR. [Concomitant]
     Active Substance: CEFDINIR
     Indication: ANTIBIOTIC THERAPY
     Dosage: 300 MILLIGRAM, BID
     Route: 065
  8. VITAMIN D NOS [Concomitant]
     Active Substance: VITAMIN D NOS
     Indication: PRODUCT USED FOR UNKNOWN INDICATION
     Dosage: UNK, QD
     Route: 065
  9. AZELASTINE. [Concomitant]
     Active Substance: AZELASTINE HYDROCHLORIDE
     Indication: HYPERSENSITIVITY
     Dosage: UNK, QD
     Route: 065

REACTIONS (4)
  - Anxiety [Recovered/Resolved]
  - Dysphagia [Recovered/Resolved]
  - Hypophagia [Recovered/Resolved]
  - Sensation of foreign body [Recovered/Resolved]

NARRATIVE: CASE EVENT DATE: 20200908
